FAERS Safety Report 7030759-9 (Version None)
Quarter: 2010Q4

REPORT INFORMATION
  Report Type: 
  Country: None (occurrence: None)
  Receive Date: 20101001
  Receipt Date: 20100901
  Transmission Date: 20110411
  Serious: Yes (Other)
  Sender: FDA-Public Use
  Company Number: CRC-10-164

PATIENT
  Age: 58 Year
  Sex: Male
  Weight: 80.7403 kg

DRUGS (3)
  1. OXALIPLATIN [Suspect]
     Indication: COLON CANCER
     Dosage: EVERY TWO WEEKS IV
     Route: 042
  2. OXALIPLATIN [Suspect]
     Indication: COLON CANCER
     Dosage: EVERY TWO WEEKS IV
     Route: 042
  3. LEUCOVORIN/5FU [Concomitant]

REACTIONS (1)
  - PAIN IN EXTREMITY [None]
